FAERS Safety Report 23829153 (Version 2)
Quarter: 2024Q3

REPORT INFORMATION
  Report Type: Spontaneous
  Country: US (occurrence: US)
  Receive Date: 20240508
  Receipt Date: 20240927
  Transmission Date: 20241017
  Serious: No
  Sender: GLAXOSMITHKLINE
  Company Number: US-GSK-US2024054697

PATIENT
  Age: 91 Year
  Sex: Female

DRUGS (2)
  1. TRELEGY ELLIPTA [Suspect]
     Active Substance: FLUTICASONE FUROATE\UMECLIDINIUM BROMIDE\VILANTEROL TRIFENATATE
     Indication: Chronic obstructive pulmonary disease
     Dosage: UNK, 100 QD
     Dates: start: 202403, end: 202404
  2. ANORO ELLIPTA [Concomitant]
     Active Substance: UMECLIDINIUM BROMIDE\VILANTEROL TRIFENATATE
     Indication: Chronic obstructive pulmonary disease
     Dosage: UNK,62.525MCG INH
     Dates: start: 202404

REACTIONS (3)
  - Pharyngeal swelling [Unknown]
  - Fungal pharyngitis [Recovered/Resolved]
  - Odynophagia [Unknown]

NARRATIVE: CASE EVENT DATE: 20240101
